FAERS Safety Report 9994558 (Version 1)
Quarter: 2014Q1

REPORT INFORMATION
  Report Type: Spontaneous
  Country: US (occurrence: US)
  Receive Date: 20140311
  Receipt Date: 20140311
  Transmission Date: 20141002
  Serious: No
  Sender: FDA-Public Use
  Company Number: US-009507513-1402USA012805

PATIENT
  Age: 73 Year
  Sex: Male

DRUGS (6)
  1. PROVENTIL [Suspect]
     Dosage: 2 PUFFS EVERY 6 HOURS (INHR_EA 90MCG 1 STANDARD PACKAGE CANISTER OF 6.7)
     Route: 055
     Dates: start: 20140221
  2. PREDNISONE [Concomitant]
  3. BENZONATATE [Concomitant]
  4. Z-PAK [Concomitant]
  5. ROBITUSSIN [Concomitant]
  6. CODEINE [Concomitant]

REACTIONS (3)
  - Dysgeusia [Recovered/Resolved]
  - Drug dose omission [Unknown]
  - Product quality issue [Unknown]
